FAERS Safety Report 5847091-9 (Version None)
Quarter: 2008Q3

REPORT INFORMATION
  Report Type: 
  Country: None (occurrence: None)
  Receive Date: 20080815
  Receipt Date: 20080808
  Transmission Date: 20090109
  Serious: Yes (Other)
  Sender: FDA-Public Use
  Company Number: BR-PFIZER INC-2007058699

PATIENT
  Sex: Female
  Weight: 103 kg

DRUGS (6)
  1. CADUET [Suspect]
     Indication: HYPERTENSION
     Dosage: TEXT:5MG/10MG
     Route: 048
  2. CADUET [Suspect]
     Indication: BLOOD CHOLESTEROL
  3. VALSARTAN [Concomitant]
     Route: 048
  4. ATENOLOL [Concomitant]
     Route: 048
  5. DRUG, UNSPECIFIED [Concomitant]
  6. ANALGESICS [Concomitant]

REACTIONS (3)
  - BLOOD PRESSURE INCREASED [None]
  - DRUG INEFFECTIVE [None]
  - PALPITATIONS [None]
